FAERS Safety Report 6812490-5 (Version None)
Quarter: 2010Q3

REPORT INFORMATION
  Report Type: 
  Country: None (occurrence: None)
  Receive Date: 20100701
  Receipt Date: 20100625
  Transmission Date: 20110219
  Serious: Yes (Death, Other)
  Sender: FDA-Public Use
  Company Number: NL-JNJFOC-20100508015

PATIENT
  Age: 69 Year
  Sex: Male

DRUGS (7)
  1. ITRACONAZOLE [Suspect]
     Indication: HISTOPLASMOSIS
     Route: 042
  2. POLYGAM S/D [Suspect]
     Indication: HISTOPLASMOSIS
     Route: 042
  3. AMOXICILLIN [Concomitant]
     Indication: PYREXIA
     Route: 042
  4. CLAVULANATE POTASSIUM [Concomitant]
     Indication: PYREXIA
     Route: 065
  5. CIPROFLOXACIN [Concomitant]
     Indication: PYREXIA
     Route: 065
  6. FLUDARABINE [Concomitant]
     Indication: LYMPHOCYTIC LEUKAEMIA
     Route: 042
  7. CYCLOPHOSPHAMIDE [Concomitant]
     Indication: LYMPHOCYTIC LEUKAEMIA
     Route: 042

REACTIONS (4)
  - DRUG INEFFECTIVE [None]
  - HISTOPLASMOSIS DISSEMINATED [None]
  - PSEUDOMONAL SEPSIS [None]
  - PULMONARY EMBOLISM [None]
